FAERS Safety Report 7463072-6 (Version None)
Quarter: 2011Q2

REPORT INFORMATION
  Report Type: 
  Country: None (occurrence: None)
  Receive Date: 20110428
  Receipt Date: 20110418
  Transmission Date: 20111010
  Serious: Yes (Other)
  Sender: FDA-Public Use
  Company Number: JPI-P-014626

PATIENT
  Age: 38 Year
  Sex: Female
  Weight: 79.8331 kg

DRUGS (5)
  1. PROTRIPTYLINE [Concomitant]
  2. XYREM [Suspect]
     Indication: NARCOLEPSY
     Dosage: ORAL, 9 GM (4.5 GM, 2 IN 1 D), ORAL
     Route: 048
     Dates: start: 20070401
  3. LANSOPRAZOLE [Concomitant]
  4. METOPROLOL TARTRATE [Concomitant]
  5. ATORVASTATIN CALCIUM [Concomitant]

REACTIONS (1)
  - RENAL FAILURE CHRONIC [None]
